FAERS Safety Report 6050502-X (Version None)
Quarter: 2009Q1

REPORT INFORMATION
  Report Type: 
  Country: None (occurrence: None)
  Receive Date: 20090126
  Receipt Date: 20090116
  Transmission Date: 20090719
  Serious: Yes (Hospitalization, Disabling)
  Sender: FDA-Public Use
  Company Number: PHHY2009JP00834

PATIENT
  Age: 11 Year
  Sex: Female

DRUGS (2)
  1. LUDIOMIL [Suspect]
     Dosage: 650 MG
     Route: 048
     Dates: start: 20090107, end: 20090107
  2. SEPAZON [Suspect]
     Dosage: 28 MG
     Route: 048
     Dates: start: 20090107, end: 20090107

REACTIONS (3)
  - DEPRESSED LEVEL OF CONSCIOUSNESS [None]
  - FATIGUE [None]
  - INTENTIONAL OVERDOSE [None]
